FAERS Safety Report 10567154 (Version 8)
Quarter: 2016Q4

REPORT INFORMATION
  Report Type: Spontaneous
  Country: US (occurrence: US)
  Receive Date: 20141105
  Receipt Date: 20161129
  Transmission Date: 20170206
  Serious: Yes (Hospitalization)
  Sender: FDA-Public Use
  Company Number: US-ACTELION-A-US2014-106616

PATIENT
  Age: 61 Year
  Sex: Male

DRUGS (20)
  1. TYVASO [Concomitant]
     Active Substance: TREPROSTINIL
  2. WARFARIN [Concomitant]
     Active Substance: WARFARIN
  3. ALLOPURINOL CF [Concomitant]
  4. LIPITOR [Concomitant]
     Active Substance: ATORVASTATIN CALCIUM
  5. DILTIAZEM CD [Concomitant]
     Active Substance: DILTIAZEM
  6. FOLIC ACID. [Concomitant]
     Active Substance: FOLIC ACID
  7. ADCIRCA [Concomitant]
     Active Substance: TADALAFIL
  8. SILDENAFIL. [Concomitant]
     Active Substance: SILDENAFIL
  9. PREDNISONE. [Concomitant]
     Active Substance: PREDNISONE
  10. POTASSIUM [Concomitant]
     Active Substance: POTASSIUM
  11. OPSUMIT [Suspect]
     Active Substance: MACITENTAN
     Indication: PULMONARY ARTERIAL HYPERTENSION
     Dosage: 10 MG, QD
     Route: 048
     Dates: start: 20140514
  12. TRAMADOL. [Concomitant]
     Active Substance: TRAMADOL
  13. METOLAZONE. [Concomitant]
     Active Substance: METOLAZONE
  14. LEFLUNOMIDE. [Concomitant]
     Active Substance: LEFLUNOMIDE
  15. PANTOPRAZOLE [Concomitant]
     Active Substance: PANTOPRAZOLE SODIUM
  16. REMODULIN [Concomitant]
     Active Substance: TREPROSTINIL
  17. FUROSEMIDE. [Concomitant]
     Active Substance: FUROSEMIDE
  18. METOPROLOL. [Concomitant]
     Active Substance: METOPROLOL
  19. ARAVA [Concomitant]
     Active Substance: LEFLUNOMIDE
  20. REVATIO [Concomitant]
     Active Substance: SILDENAFIL CITRATE

REACTIONS (12)
  - Dyspnoea [Not Recovered/Not Resolved]
  - Palpitations [Not Recovered/Not Resolved]
  - Pain [Not Recovered/Not Resolved]
  - Pain [Not Recovered/Not Resolved]
  - Supraventricular tachycardia [Recovering/Resolving]
  - Syncope [Not Recovered/Not Resolved]
  - Atrial tachycardia [Recovered/Resolved]
  - Influenza [Recovered/Resolved]
  - Rheumatoid arthritis [Not Recovered/Not Resolved]
  - Fluid overload [Not Recovered/Not Resolved]
  - Chest pain [Recovering/Resolving]
  - Dyspnoea [Recovering/Resolving]

NARRATIVE: CASE EVENT DATE: 20160308
